FAERS Safety Report 13416872 (Version 1)
Quarter: 2017Q2

REPORT INFORMATION
  Report Type: Spontaneous
  Country: SG (occurrence: SG)
  Receive Date: 20170407
  Receipt Date: 20170407
  Transmission Date: 20170830
  Serious: Yes (Other)
  Sender: FDA-Public Use
  Company Number: SG-BAYER-2017-060882

PATIENT
  Age: 31 Year
  Sex: Female

DRUGS (1)
  1. CLOTRIMAZOLE. [Suspect]
     Active Substance: CLOTRIMAZOLE
     Dosage: UNK

REACTIONS (2)
  - Rash maculo-papular [Unknown]
  - Angioedema [Unknown]

NARRATIVE: CASE EVENT DATE: 20160101
